FAERS Safety Report 21259299 (Version 1)
Quarter: 2022Q3

REPORT INFORMATION
  Report Type: Spontaneous
  Country: US (occurrence: US)
  Receive Date: 20220826
  Receipt Date: 20220826
  Transmission Date: 20221026
  Serious: No
  Sender: FDA-Public Use
  Company Number: US-PFIZER INC-PV202200050140

PATIENT
  Age: 79 Year
  Sex: Female

DRUGS (2)
  1. DILTIAZEM HYDROCHLORIDE [Interacting]
     Active Substance: DILTIAZEM HYDROCHLORIDE
     Dosage: UNK
  2. IBRANCE [Interacting]
     Active Substance: PALBOCICLIB
     Dosage: UNK

REACTIONS (3)
  - Drug interaction [Unknown]
  - Fatigue [Unknown]
  - Decreased appetite [Unknown]
